FAERS Safety Report 11167894 (Version 1)
Quarter: 2015Q2

REPORT INFORMATION
  Report Type: Spontaneous
  Country: US (occurrence: None)
  Receive Date: 20150603
  Receipt Date: 20150603
  Transmission Date: 20150821
  Serious: Yes (Other)
  Sender: FDA-Public Use
  Company Number: FK201502460

PATIENT
  Age: 32 Year
  Sex: Male

DRUGS (2)
  1. CHORIONIC GONADOTROPIN [Suspect]
     Active Substance: CHORIOGONADOTROPIN ALFA
     Indication: HORMONE THERAPY
  2. ANASTROZOLE (MANUFACTURER UNKNOWN) (ANASTROZOLE) (ANASTROZOLE) [Suspect]
     Active Substance: ANASTROZOLE
     Indication: HORMONE THERAPY

REACTIONS (1)
  - Retinal vein occlusion [None]
